FAERS Safety Report 5601314-X (Version None)
Quarter: 2008Q1

REPORT INFORMATION
  Report Type: 
  Country: None (occurrence: None)
  Receive Date: 20080124
  Receipt Date: 20080114
  Transmission Date: 20080703
  Serious: Yes (Hospitalization)
  Sender: FDA-Public Use
  Company Number: B0504669A

PATIENT
  Age: 84 Year
  Sex: Female

DRUGS (5)
  1. DEROXAT [Suspect]
     Indication: DEPRESSION
     Dosage: 20MG PER DAY
     Route: 048
  2. PREVISCAN [Suspect]
     Indication: ARRHYTHMIA
     Route: 048
     Dates: start: 20070606, end: 20070821
  3. CORDARONE [Suspect]
     Indication: ARRHYTHMIA
     Dosage: 200MG PER DAY
     Route: 048
     Dates: end: 20070821
  4. VASTAREL [Concomitant]
     Indication: ANGINA PECTORIS
     Dosage: 35MG TWICE PER DAY
     Route: 048
  5. ATACAND [Concomitant]
     Dosage: 16MG PER DAY
     Route: 048

REACTIONS (5)
  - ANAEMIA [None]
  - DRUG INTERACTION [None]
  - HAEMATOMA [None]
  - MOBILITY DECREASED [None]
  - MUSCLE HAEMORRHAGE [None]
